FAERS Safety Report 10594089 (Version 1)
Quarter: 2014Q4

REPORT INFORMATION
  Report Type: Spontaneous
  Country: IT (occurrence: NP)
  Receive Date: 20141119
  Receipt Date: 20141119
  Transmission Date: 20150529
  Serious: Yes (Life-Threatening)
  Sender: FDA-Public Use
  Company Number: IT-BAYER-2014-167577

PATIENT
  Age: 27 Year
  Sex: Female
  Weight: 65 kg

DRUGS (1)
  1. CIPROFLOXACIN. [Suspect]
     Active Substance: CIPROFLOXACIN
     Indication: DIARRHOEA INFECTIOUS
     Dosage: UNK
     Route: 048
     Dates: start: 20131220, end: 20131221

REACTIONS (10)
  - Anxiety [Recovering/Resolving]
  - Fatigue [Recovering/Resolving]
  - Malaise [Recovering/Resolving]
  - Tachycardia [Recovering/Resolving]
  - Depression [Recovering/Resolving]
  - Tendon pain [Recovering/Resolving]
  - Panic attack [Recovering/Resolving]
  - Muscle contractions involuntary [Recovering/Resolving]
  - Neuropathy peripheral [Recovered/Resolved]
  - Insomnia [Recovering/Resolving]

NARRATIVE: CASE EVENT DATE: 20131220
